FAERS Safety Report 8853242 (Version 2)
Quarter: 2012Q4

REPORT INFORMATION
  Report Type: 
  Country: JP (occurrence: JP)
  Receive Date: 20121022
  Receipt Date: 20121101
  Transmission Date: 20130627
  Serious: Yes (Other)
  Sender: FDA-Public Use
  Company Number: JP-ASTRAZENECA-2012SE78962

PATIENT
  Sex: Male

DRUGS (1)
  1. XYLOCAINE POLYAMP [Suspect]
     Dosage: Dose unknown
     Route: 013
     Dates: start: 20121011, end: 20121011

REACTIONS (2)
  - Convulsion [Recovered/Resolved]
  - Incorrect route of drug administration [Unknown]
